FAERS Safety Report 23995419 (Version 1)
Quarter: 2024Q2

REPORT INFORMATION
  Report Type: Spontaneous
  Country: US (occurrence: None)
  Receive Date: 20240619
  Receipt Date: 20240619
  Transmission Date: 20240715
  Serious: Yes (Hospitalization)
  Sender: FDA-Public Use
  Company Number: None

PATIENT
  Age: 24 Year
  Sex: Male

DRUGS (1)
  1. INFLIXIMAB [Suspect]
     Active Substance: INFLIXIMAB
     Dosage: OTHER FREQUENCY : Q 8 WEEKS;?
     Route: 042
     Dates: start: 20231227, end: 202406

REACTIONS (2)
  - Colitis ulcerative [None]
  - Drug ineffective [None]
